FAERS Safety Report 7712967-4 (Version None)
Quarter: 2011Q3

REPORT INFORMATION
  Report Type: 
  Country: None (occurrence: None)
  Receive Date: 20110826
  Receipt Date: 20110819
  Transmission Date: 20111222
  Serious: Yes (Hospitalization, Other)
  Sender: FDA-Public Use
  Company Number: CZ-TEVA-297617ISR

PATIENT
  Age: 62 Year
  Sex: Female
  Weight: 69 kg

DRUGS (8)
  1. AMILORIDE HYDROCHLORIDE [Concomitant]
     Indication: HYPERTENSION
     Dosage: 5 MILLIGRAM;
     Route: 048
     Dates: start: 20060101
  2. ATORVASTATIN [Concomitant]
     Indication: HYPERLIPIDAEMIA
     Dosage: 20 MILLIGRAM;
     Route: 048
     Dates: start: 20090101
  3. LEUCOVORIN CALCIUM [Concomitant]
     Indication: RHEUMATOID ARTHRITIS
     Dates: start: 20071029, end: 20110531
  4. PERINDOPRIL [Concomitant]
     Indication: HYPERTENSION
     Dosage: 4 MILLIGRAM;
     Route: 048
     Dates: start: 20091026
  5. CP 690,550 / PLACEBO [Suspect]
     Dosage: BLINDED, INFORMATION WITH
  6. HYDROCHLOROTHIAZIDE [Concomitant]
     Indication: HYPERTENSION
     Dosage: 50 MILLIGRAM;
     Route: 048
     Dates: start: 20060101
  7. METHOTREXATE SODIUM [Suspect]
     Indication: RHEUMATOID ARTHRITIS
     Dosage: 2.1429 MILLIGRAM;
     Route: 048
     Dates: start: 20090126, end: 20110531
  8. LEVOTHYROXINE SODIUM [Concomitant]
     Indication: THYROID DISORDER
     Dosage: 35.7143 ; UG
     Route: 048
     Dates: start: 20090101

REACTIONS (1)
  - LUNG NEOPLASM MALIGNANT [None]
